FAERS Safety Report 4546413-9 (Version None)
Quarter: 2005Q1

REPORT INFORMATION
  Report Type: 
  Country: None (occurrence: None)
  Receive Date: 20050103
  Receipt Date: 20041119
  Transmission Date: 20050727
  Serious: Yes (Other)
  Sender: FDA-Public Use
  Company Number: 2004097734

PATIENT
  Age: 77 Year
  Sex: Male

DRUGS (8)
  1. CELEBREX [Suspect]
     Indication: ILL-DEFINED DISORDER
     Dosage: 200 MG (100 MG, 2 IN 1 D), ORAL
     Route: 048
  2. ACETYLSALICYLIC ACID (ACETYLSALICYLIC ACID) [Suspect]
     Indication: ILL-DEFINED DISORDER
     Dosage: 325 MG 9325 MG, 1 IN 1 D), ORAL
     Route: 048
  3. ATENOLOL [Concomitant]
  4. EPOETIN ALFA (EPOETIN ALFA) [Concomitant]
  5. IRON DEXTRAN (IRON DEXTRAN) [Concomitant]
  6. GLUCERYL TRINITRATE (GLYCERYL TRINITRATE) [Concomitant]
  7. CLOPIDEGOL SULFATE (CLOPIDGREL SULFATE) [Concomitant]
  8. ENALAPRIL MALEATE [Concomitant]

REACTIONS (4)
  - ANGINA PECTORIS [None]
  - ATRIAL FIBRILLATION [None]
  - DUODENAL ULCER [None]
  - HAEMOGLOBIN DECREASED [None]
